FAERS Safety Report 17931047 (Version 3)
Quarter: 2020Q4

REPORT INFORMATION
  Report Type: Report from Study
  Country: US (occurrence: US)
  Receive Date: 20200623
  Receipt Date: 20201222
  Transmission Date: 20210113
  Serious: Yes (Other)
  Sender: FDA-Public Use
  Company Number: NVSC2020US172809

PATIENT
  Age: 6 Year
  Sex: Male

DRUGS (3)
  1. FLUDARABINE [Concomitant]
     Active Substance: FLUDARABINE PHOSPHATE
     Indication: CHEMOTHERAPY
     Route: 065
  2. KYMRIAH [Suspect]
     Active Substance: TISAGENLECLEUCEL
     Indication: LYMPHOCYTIC LEUKAEMIA
     Dosage: UNK, ONCE/SINGLE
     Route: 041
     Dates: start: 20200612
  3. CYCLOPHOSPHAMIDE. [Concomitant]
     Active Substance: CYCLOPHOSPHAMIDE
     Indication: CHEMOTHERAPY
     Route: 065

REACTIONS (22)
  - Acute respiratory distress syndrome [Unknown]
  - Haemoglobin decreased [Unknown]
  - Haematocrit decreased [Unknown]
  - Tremor [Not Recovered/Not Resolved]
  - Neutropenia [Recovered/Resolved]
  - Hypotension [Unknown]
  - Hypogammaglobulinaemia [Not Recovered/Not Resolved]
  - White blood cell count decreased [Unknown]
  - Thrombocytopenia [Recovered/Resolved]
  - Neurotoxicity [Recovered/Resolved]
  - Cytopenia [Unknown]
  - Pyrexia [Unknown]
  - Blood count abnormal [Unknown]
  - Hypoxia [Unknown]
  - Blast cell count increased [Unknown]
  - Cytokine release syndrome [Recovered/Resolved]
  - Aphasia [Not Recovered/Not Resolved]
  - Clostridium difficile infection [Unknown]
  - Stomatococcal infection [Unknown]
  - Lymphocyte count decreased [Unknown]
  - Staphylococcal infection [Unknown]
  - White blood cell count increased [Unknown]
